FAERS Safety Report 8834816 (Version 2)
Quarter: 2012Q4

REPORT INFORMATION
  Report Type: 
  Country: US (occurrence: US)
  Receive Date: 20121010
  Receipt Date: 20121101
  Transmission Date: 20130627
  Serious: Yes (Death)
  Sender: FDA-Public Use
  Company Number: US-GLAXOSMITHKLINE-A0996862A

PATIENT
  Age: 62 Year
  Sex: Male
  Weight: 90.9 kg

DRUGS (3)
  1. REQUIP [Suspect]
     Indication: PRODUCT USED FOR UNKNOWN INDICATION
     Dosage: 6MG Three times per day
     Route: 065
     Dates: start: 20110205
  2. GLUCOTROL XL [Concomitant]
     Indication: TYPE 2 DIABETES MELLITUS
     Dosage: 10MG Twice per day
  3. STALEVO [Concomitant]
     Indication: PARKINSON^S DISEASE
     Dosage: 200MG Three times per day

REACTIONS (2)
  - Death [Fatal]
  - General physical health deterioration [Fatal]
